FAERS Safety Report 4560330-X (Version None)
Quarter: 2005Q1

REPORT INFORMATION
  Report Type: 
  Country: None (occurrence: None)
  Receive Date: 20050125
  Receipt Date: 20050112
  Transmission Date: 20050727
  Serious: Yes (Other)
  Sender: FDA-Public Use
  Company Number: PHBS2005JP00933

PATIENT
  Age: 51 Year
  Sex: Female

DRUGS (4)
  1. TEGRETOL [Suspect]
     Indication: EAR PAIN
     Dosage: 200 MG/DAY
     Route: 048
     Dates: start: 19990812, end: 19990826
  2. TEGRETOL [Suspect]
     Dosage: 400 MG/DAY
     Route: 048
     Dates: start: 19990827, end: 19990101
  3. TEGRETOL [Suspect]
     Dosage: 400 MG/DAY
     Route: 048
     Dates: start: 19990928
  4. GRANDAXIN [Concomitant]

REACTIONS (2)
  - EAR PAIN [None]
  - MALAISE [None]
